FAERS Safety Report 6874605-2 (Version None)
Quarter: 2010Q3

REPORT INFORMATION
  Report Type: 
  Country: None (occurrence: None)
  Receive Date: 20100722
  Receipt Date: 20100712
  Transmission Date: 20110219
  Serious: Yes (Hospitalization)
  Sender: FDA-Public Use
  Company Number: 2010AC000476

PATIENT
  Age: 91 Year
  Sex: Female

DRUGS (11)
  1. DIGOXIN [Suspect]
     Dosage: 62.5 UG; QD; PO
     Route: 048
  2. BISOPROLOL [Concomitant]
  3. ACETAMINOPHEN AND CODEINE PHOSPHATE [Concomitant]
  4. FUROSEMIDE [Concomitant]
  5. TEMAZEPAM [Concomitant]
  6. ACETAMINOPHEN [Concomitant]
  7. LACTULOSE [Concomitant]
  8. LANSOPRAZOLE [Concomitant]
  9. NULYTELY [Concomitant]
  10. GLYCERYL TRINITRATE [Concomitant]
  11. GELTEARS [Concomitant]

REACTIONS (7)
  - ATRIAL FIBRILLATION [None]
  - BRADYCARDIA [None]
  - CHEST PAIN [None]
  - CONFUSIONAL STATE [None]
  - DIZZINESS [None]
  - NODAL RHYTHM [None]
  - PALLOR [None]
